FAERS Safety Report 6013314-9 (Version None)
Quarter: 2008Q4

REPORT INFORMATION
  Report Type: 
  Country: None (occurrence: None)
  Receive Date: 20081218
  Receipt Date: 20081218
  Transmission Date: 20090506
  Serious: Yes (Other)
  Sender: FDA-Public Use
  Company Number: None

PATIENT
  Age: 80 Year
  Sex: Female

DRUGS (1)
  1. ALENDRONATE SODIUM [Suspect]
     Dosage: TAKE 1 TABLET ONCE WEEKLY AS DIRECTED

REACTIONS (5)
  - FEELING ABNORMAL [None]
  - HEADACHE [None]
  - MALAISE [None]
  - PRODUCT QUALITY ISSUE [None]
  - TRANSIENT ISCHAEMIC ATTACK [None]
